FAERS Safety Report 12675059 (Version 1)
Quarter: 2016Q3

REPORT INFORMATION
  Report Type: Spontaneous
  Country: ES (occurrence: ES)
  Receive Date: 20160822
  Receipt Date: 20160822
  Transmission Date: 20161109
  Serious: No
  Sender: FDA-Public Use
  Company Number: ES-PSKUSFDA-2015-ES-0011

PATIENT
  Age: 42 Year
  Sex: Female

DRUGS (5)
  1. PACLITAXEL. [Suspect]
     Active Substance: PACLITAXEL
     Indication: OVARIAN CANCER
  2. CARBOPLATIN. [Suspect]
     Active Substance: CARBOPLATIN
     Indication: OVARIAN CANCER
     Dosage: UNKNOWN
  3. DEXAMETHASONE. [Suspect]
     Active Substance: DEXAMETHASONE
     Indication: PREMEDICATION
     Dosage: UNKNOWN
  4. GRANISETRON (UNKNOWN) [Suspect]
     Active Substance: GRANISETRON
     Indication: PREMEDICATION
     Dosage: UNKNOWN
  5. RANITIDINE. [Suspect]
     Active Substance: RANITIDINE
     Indication: PREMEDICATION
     Dosage: UNKNOWN

REACTIONS (2)
  - Exposure during pregnancy [Unknown]
  - Neurotoxicity [Unknown]
